FAERS Safety Report 10023152 (Version 2)
Quarter: 2014Q2

REPORT INFORMATION
  Report Type: Spontaneous
  Country: US (occurrence: US)
  Receive Date: 20140320
  Receipt Date: 20140502
  Transmission Date: 20141212
  Serious: Yes (Other)
  Sender: FDA-Public Use
  Company Number: US-009507513-1403USA007494

PATIENT
  Sex: Male
  Weight: 129.71 kg

DRUGS (1)
  1. VYTORIN [Suspect]
     Indication: BLOOD CHOLESTEROL INCREASED
     Dosage: 1 TABLET BEDTIME
     Route: 048
     Dates: start: 20070618

REACTIONS (7)
  - Type 2 diabetes mellitus [Unknown]
  - Cardiac pacemaker insertion [Unknown]
  - Atrial fibrillation [Unknown]
  - Lower gastrointestinal haemorrhage [Unknown]
  - Hypogonadism [Unknown]
  - Colectomy [Unknown]
  - Sleep apnoea syndrome [Unknown]
